FAERS Safety Report 5371498-X (Version None)
Quarter: 2007Q2

REPORT INFORMATION
  Report Type: 
  Country: None (occurrence: None)
  Receive Date: 20070622
  Receipt Date: 20070614
  Transmission Date: 20071010
  Serious: Yes (Other)
  Sender: FDA-Public Use
  Company Number: CHPA2007US07021

PATIENT
  Age: 30 Month
  Sex: Male
  Weight: 14.5 kg

DRUGS (1)
  1. EXCEDRIN EXTRA STRENGTH(NCH)(CAFFEINE CITRATE, ACETYLSALICYLIC ACID,AC [Suspect]
     Indication: INCORRECT DOSE ADMINISTERED
     Dosage: 1 DF, ONCE/SINGLE, ORAL
     Route: 048
     Dates: start: 20070611, end: 20070611

REACTIONS (3)
  - ACCIDENTAL DRUG INTAKE BY CHILD [None]
  - ACCIDENTAL OVERDOSE [None]
  - NO ADVERSE DRUG EFFECT [None]
